FAERS Safety Report 9414292 (Version 1)
Quarter: 2013Q3

REPORT INFORMATION
  Report Type: Spontaneous
  Country: FR (occurrence: FR)
  Receive Date: 20130723
  Receipt Date: 20130723
  Transmission Date: 20140515
  Serious: Yes (Other)
  Sender: FDA-Public Use
  Company Number: FR-ASTELLAS-2013US007656

PATIENT
  Age: 80 Year
  Sex: Male

DRUGS (1)
  1. AMBISOME [Suspect]
     Indication: CUTANEOUS LEISHMANIASIS
     Dosage: UNK
     Route: 065

REACTIONS (1)
  - Cardiac failure congestive [Unknown]
